FAERS Safety Report 7265638-5 (Version None)
Quarter: 2011Q1

REPORT INFORMATION
  Report Type: 
  Country: None (occurrence: None)
  Receive Date: 20110131
  Receipt Date: 20110120
  Transmission Date: 20110831
  Serious: Yes (Death, Hospitalization)
  Sender: FDA-Public Use
  Company Number: US-CELGENEUS-163-21880-10121083

PATIENT
  Sex: Male

DRUGS (1)
  1. REVLIMID [Suspect]
     Indication: MULTIPLE MYELOMA
     Route: 048
     Dates: start: 20100630, end: 20101202

REACTIONS (4)
  - LEUKAEMIA PLASMACYTIC [None]
  - DRUG INEFFECTIVE [None]
  - DEATH [None]
  - PLASMACYTOMA [None]
